FAERS Safety Report 4267705-7 (Version None)
Quarter: 2004Q1

REPORT INFORMATION
  Report Type: 
  Country: None (occurrence: None)
  Receive Date: 20040109
  Receipt Date: 20020201
  Transmission Date: 20041129
  Serious: Yes (Other)
  Sender: FDA-Public Use
  Company Number: PHEH2002US01355

PATIENT
  Age: 70 Year
  Sex: Female
  Weight: 59 kg

DRUGS (10)
  1. ATENOLOL [Concomitant]
  2. LAMISIL [Suspect]
     Indication: NAIL TINEA
     Dosage: 250 MG, QD
     Route: 048
     Dates: start: 20000424, end: 20000724
  3. VIOXX [Concomitant]
  4. ZIAC [Concomitant]
  5. DETROL [Concomitant]
  6. ATIVAN [Concomitant]
  7. ESTRACE ^MEAD JOHNSON^ [Concomitant]
  8. GLUCOSAMINE W/CHONDROITIN SULFATES [Concomitant]
  9. TRUSOPT [Concomitant]
  10. CELEBREX [Concomitant]

REACTIONS (3)
  - BLOOD BILIRUBIN INCREASED [None]
  - CARDIAC FAILURE CONGESTIVE [None]
  - HEPATOCELLULAR DAMAGE [None]
